FAERS Safety Report 8025117-4 (Version None)
Quarter: 2012Q1

REPORT INFORMATION
  Report Type: 
  Country: None (occurrence: None)
  Receive Date: 20120103
  Receipt Date: 20111219
  Transmission Date: 20120608
  Serious: Yes (Other)
  Sender: FDA-Public Use
  Company Number: 2011MA017872

PATIENT
  Age: 34 Year
  Sex: Male

DRUGS (2)
  1. LEVETIRACETAM [Suspect]
     Indication: EPILEPSY
     Dosage: UNK;UNK
  2. LAMOTRIGINE [Suspect]
     Indication: EPILEPSY
     Dosage: UNK;UNK

REACTIONS (2)
  - EPILEPSY [None]
  - GRAND MAL CONVULSION [None]
